FAERS Safety Report 6170894-0 (Version None)
Quarter: 2009Q2

REPORT INFORMATION
  Report Type: 
  Country: None (occurrence: None)
  Receive Date: 20090427
  Receipt Date: 20090420
  Transmission Date: 20091009
  Serious: Yes (Other)
  Sender: FDA-Public Use
  Company Number: 2009SP008546

PATIENT
  Age: 60 Year
  Sex: Female
  Weight: 80 kg

DRUGS (2)
  1. PEG-INTRON [Suspect]
     Indication: HEPATITIS C
     Dosage: 100 MCG; QW
  2. COPEGUS [Concomitant]

REACTIONS (2)
  - CONVULSION [None]
  - MYOCLONUS [None]
